FAERS Safety Report 12847754 (Version 1)
Quarter: 2016Q4

REPORT INFORMATION
  Report Type: Spontaneous
  Country: US (occurrence: US)
  Receive Date: 20161013
  Receipt Date: 20161013
  Transmission Date: 20170207
  Serious: Yes (Disabling)
  Sender: FDA-Public Use
  Company Number: None

PATIENT
  Age: 56 Year
  Sex: Male
  Weight: 87.75 kg

DRUGS (1)
  1. FLUTICASONE PROPIONATE 50 MCG/AC [Suspect]
     Active Substance: FLUTICASONE PROPIONATE
     Indication: SINUS CONGESTION
     Dosage: ?          QUANTITY:16 SPRAY(S);?
     Route: 055

REACTIONS (1)
  - Vomiting [None]

NARRATIVE: CASE EVENT DATE: 20150725
